FAERS Safety Report 13060710 (Version 1)
Quarter: 2016Q4

REPORT INFORMATION
  Report Type: Spontaneous
  Country: RU (occurrence: RU)
  Receive Date: 20161225
  Receipt Date: 20161225
  Transmission Date: 20170207
  Serious: Yes (Life-Threatening, Hospitalization)
  Sender: FDA-Public Use
  Company Number: RU-ASTRAZENECA-2016SF34821

PATIENT
  Age: 79 Year
  Sex: Female
  Weight: 70 kg

DRUGS (5)
  1. BRILINTA [Suspect]
     Active Substance: TICAGRELOR
     Indication: MYOCARDIAL INFARCTION
     Route: 048
     Dates: start: 201606
  2. ATORIS [Concomitant]
     Active Substance: ATORVASTATIN CALCIUM
  3. CARVEDILOL. [Concomitant]
     Active Substance: CARVEDILOL
  4. DIUVER [Concomitant]
     Active Substance: TORSEMIDE
  5. AMIODARONE [Concomitant]
     Active Substance: AMIODARONE

REACTIONS (1)
  - Apparent death [Unknown]

NARRATIVE: CASE EVENT DATE: 201611
